FAERS Safety Report 6649799-4 (Version None)
Quarter: 2010Q1

REPORT INFORMATION
  Report Type: 
  Country: None (occurrence: None)
  Receive Date: 20100322
  Receipt Date: 20100309
  Transmission Date: 20100710
  Serious: Yes (Death)
  Sender: FDA-Public Use
  Company Number: KV201000071

PATIENT
  Age: 88 Year
  Sex: Female

DRUGS (7)
  1. ISOSORBIDE MONONITRATE [Suspect]
     Indication: DRUG USE FOR UNKNOWN INDICATION
     Dosage: 30 MG, TID, ORAL
     Route: 048
     Dates: start: 20081018, end: 20081210
  2. AVAPRO [Concomitant]
  3. LEXAPRO [Concomitant]
  4. ATENOLOL [Concomitant]
  5. PLAVIX [Concomitant]
  6. ALISKIREN (ALISKIREN) [Concomitant]
  7. CLONIDINE [Concomitant]

REACTIONS (12)
  - BACK PAIN [None]
  - DIZZINESS [None]
  - FALL [None]
  - GASTROINTESTINAL HAEMORRHAGE [None]
  - HAEMORRHAGE INTRACRANIAL [None]
  - HEAD INJURY [None]
  - MENTAL STATUS CHANGES [None]
  - RESPIRATORY DISTRESS [None]
  - RIB FRACTURE [None]
  - SKULL FRACTURE [None]
  - SYNCOPE [None]
  - VOMITING [None]
